FAERS Safety Report 22914447 (Version 8)
Quarter: 2025Q4

REPORT INFORMATION
  Report Type: Spontaneous
  Country: EU (occurrence: EU)
  Receive Date: 20230907
  Receipt Date: 20251218
  Transmission Date: 20260117
  Serious: Yes (Other)
  Sender: CELLTRION
  Company Number: EU-CELLTRION INC.-2023CZ016608

PATIENT

DRUGS (32)
  1. TRASTUZUMAB [Suspect]
     Active Substance: TRASTUZUMAB
     Indication: Invasive ductal breast carcinoma
     Dosage: TRASTUZUMAB AND PERTUZUMA [COMBINATION] WITH DOCETAXEL6
     Route: 065
     Dates: start: 2019
  2. TRASTUZUMAB [Suspect]
     Active Substance: TRASTUZUMAB
     Indication: Breast cancer
     Dosage: 600 MG
     Route: 065
     Dates: start: 2012
  3. TRASTUZUMAB [Suspect]
     Active Substance: TRASTUZUMAB
     Indication: Breast cancer
     Dosage: UNK (DOSE FORM: INJECTION)
     Dates: start: 2019
  4. TRASTUZUMAB [Suspect]
     Active Substance: TRASTUZUMAB
     Dosage: 600 MILLIGRAM, Q21D DOSE FORM: INJECTION)
     Route: 058
  5. TRASTUZUMAB [Suspect]
     Active Substance: TRASTUZUMAB
     Dosage: 600 MILLIGRAM, EVERY 21 DAYS
     Route: 065
     Dates: start: 2012
  6. TRASTUZUMAB [Suspect]
     Active Substance: TRASTUZUMAB
     Dosage: 600 MILLIGRAM, EVERY 21 DAYS / 600 MG S.C. EVERY 21 DAYS WITH PACLITAXEL AFTER DOXORUBICIN AND CYCLO
     Route: 058
     Dates: start: 2012
  7. CAPECITABINE [Suspect]
     Active Substance: CAPECITABINE
     Indication: Disease progression
     Dosage: UNK
     Route: 065
  8. CAPECITABINE [Suspect]
     Active Substance: CAPECITABINE
     Indication: Breast cancer
     Dosage: UNK
     Route: 048
  9. CAPECITABINE [Suspect]
     Active Substance: CAPECITABINE
     Dosage: UNK
     Route: 048
  10. CAPECITABINE [Suspect]
     Active Substance: CAPECITABINE
     Dosage: UNK
     Route: 048
  11. DOXORUBICIN HYDROCHLORIDE [Suspect]
     Active Substance: DOXORUBICIN HYDROCHLORIDE
     Indication: Breast cancer
     Dosage: 60 MILLIGRAM/SQ. METER
     Route: 065
     Dates: start: 2012
  12. GOSERELIN [Suspect]
     Active Substance: GOSERELIN
     Indication: Breast cancer
     Dosage: UNK
     Route: 065
     Dates: start: 2012
  13. TAMOXIFEN CITRATE [Suspect]
     Active Substance: TAMOXIFEN CITRATE
     Indication: Breast cancer
     Dosage: PLANNED FOR ANOTHER FIVE YEARS
     Route: 065
  14. LETROZOLE [Suspect]
     Active Substance: LETROZOLE
     Indication: Breast cancer
     Dosage: UNK
     Route: 065
     Dates: start: 2012
  15. CYCLOPHOSPHAMIDE [Suspect]
     Active Substance: CYCLOPHOSPHAMIDE
     Indication: Breast cancer
     Dosage: 600 MILLIGRAM/SQ. METER
     Route: 065
     Dates: start: 2012
  16. PACLITAXEL [Suspect]
     Active Substance: PACLITAXEL
     Indication: Breast cancer
     Dosage: 12X90 MILLIGRAM/SQ. METER
     Route: 065
     Dates: start: 2012
  17. PERTUZUMAB [Suspect]
     Active Substance: PERTUZUMAB
     Indication: Invasive ductal breast carcinoma
     Dosage: UNK
     Route: 065
     Dates: start: 2019
  18. PERTUZUMAB [Suspect]
     Active Substance: PERTUZUMAB
     Indication: Breast cancer
  19. PERTUZUMAB [Suspect]
     Active Substance: PERTUZUMAB
     Indication: Breast cancer
  20. DOCETAXEL [Suspect]
     Active Substance: DOCETAXEL
     Indication: Invasive ductal breast carcinoma
     Dosage: UNK
     Route: 065
     Dates: start: 2019
  21. DOCETAXEL [Suspect]
     Active Substance: DOCETAXEL
     Indication: Breast cancer
  22. DOCETAXEL [Suspect]
     Active Substance: DOCETAXEL
     Indication: Breast cancer
  23. LAPATINIB [Suspect]
     Active Substance: LAPATINIB
     Indication: Disease progression
     Dosage: UNK
     Route: 065
  24. LAPATINIB [Suspect]
     Active Substance: LAPATINIB
     Indication: Breast cancer
  25. XELODA [Suspect]
     Active Substance: CAPECITABINE
     Indication: Breast cancer
     Dosage: UNK
     Route: 048
  26. FAM-TRASTUZUMAB DERUXTECAN-NXKI [Concomitant]
     Active Substance: FAM-TRASTUZUMAB DERUXTECAN-NXKI
     Indication: Breast cancer
     Dosage: 5.4 MG/KG
     Route: 065
     Dates: start: 2021
  27. TAMOXIFEN CITRATE [Concomitant]
     Active Substance: TAMOXIFEN CITRATE
     Indication: Product used for unknown indication
     Dosage: 20 MG / 1 EA
     Route: 065
  28. CAPECITABINE [Concomitant]
     Active Substance: CAPECITABINE
     Route: 048
  29. LAPATINIB [Concomitant]
     Active Substance: LAPATINIB
     Indication: Product used for unknown indication
     Route: 065
  30. GOSERELIN [Concomitant]
     Active Substance: GOSERELIN
  31. LETROZOLE [Concomitant]
     Active Substance: LETROZOLE
     Indication: Product used for unknown indication
     Route: 065
  32. XELODA [Concomitant]
     Active Substance: CAPECITABINE
     Indication: Product used for unknown indication
     Route: 065

REACTIONS (9)
  - Breast cancer [Recovered/Resolved]
  - Disease progression [Unknown]
  - Biliary colic [Unknown]
  - Pain [Unknown]
  - Dyspnoea [Unknown]
  - Therapeutic product effect incomplete [Unknown]
  - Drug ineffective [Recovered/Resolved]
  - Treatment failure [Recovered/Resolved]
  - Off label use [Unknown]
